FAERS Safety Report 15524632 (Version 1)
Quarter: 2018Q4

REPORT INFORMATION
  Report Type: Spontaneous
  Country: US (occurrence: US)
  Receive Date: 20181018
  Receipt Date: 20181018
  Transmission Date: 20190205
  Serious: Yes (Disabling)
  Sender: FDA-Public Use
  Company Number: None

PATIENT
  Age: 10 Year
  Sex: Female
  Weight: 26.31 kg

DRUGS (1)
  1. MIRACLE MINERAL SOLUTION [Suspect]
     Active Substance: SODIUM CHLORITE
     Indication: INFLUENZA
     Dosage: ?          OTHER DOSE:1-2 DROPS;?
     Dates: start: 20150429, end: 20150430

REACTIONS (7)
  - Product odour abnormal [None]
  - Diarrhoea [None]
  - Product complaint [None]
  - Manufacturing materials issue [None]
  - Product use in unapproved indication [None]
  - Product contamination physical [None]
  - Vomiting [None]

NARRATIVE: CASE EVENT DATE: 20150430
